FAERS Safety Report 5096974-9 (Version None)
Quarter: 2006Q3

REPORT INFORMATION
  Report Type: 
  Country: None (occurrence: None)
  Receive Date: 20060831
  Receipt Date: 20060815
  Transmission Date: 20061208
  Serious: Yes (Other)
  Sender: FDA-Public Use
  Company Number: DSA_61074_2006

PATIENT
  Age: 5 Year
  Sex: Female
  Weight: 22.7 kg

DRUGS (3)
  1. DIASTAT [Suspect]
     Indication: CONVULSION
     Dosage: 10 MG VARIABLE RC
     Dates: start: 20030101
  2. FELBATOL [Concomitant]
  3. SINGULAIR [Concomitant]

REACTIONS (2)
  - CONVULSION [None]
  - DRUG WITHDRAWAL SYNDROME [None]
